FAERS Safety Report 6540408-1 (Version None)
Quarter: 2010Q1

REPORT INFORMATION
  Report Type: 
  Country: None (occurrence: None)
  Receive Date: 20100113
  Receipt Date: 20100104
  Transmission Date: 20100710
  Serious: Yes (Hospitalization)
  Sender: FDA-Public Use
  Company Number: 466728

PATIENT
  Age: 76 Year
  Sex: Female

DRUGS (4)
  1. PACLITAXEL [Suspect]
     Indication: BREAST CANCER
  2. (TRASTUCUMAB) [Concomitant]
  3. (ATORAVASTATIN) [Concomitant]
  4. MULTI-VITAMINS [Concomitant]

REACTIONS (6)
  - ACQUIRED HAEMOPHILIA [None]
  - ACTIVATED PARTIAL THROMBOPLASTIN TIME PROLONGED [None]
  - DISSEMINATED INTRAVASCULAR COAGULATION [None]
  - FACTOR VIII INHIBITION [None]
  - HAEMATURIA [None]
  - HAEMOGLOBIN DECREASED [None]
